FAERS Safety Report 5030179-2 (Version None)
Quarter: 2006Q2

REPORT INFORMATION
  Report Type: 
  Country: None (occurrence: None)
  Receive Date: 20060614
  Receipt Date: 20060526
  Transmission Date: 20061013
  Serious: Yes (Death, Hospitalization, Other)
  Sender: FDA-Public Use
  Company Number: JP200605002814

PATIENT
  Age: 58 Year
  Sex: Male

DRUGS (10)
  1. GEMZAR [Suspect]
     Indication: PANCREATIC CARCINOMA
     Dosage: 1200 MG, OTHER, INTRAVENOUS
     Route: 042
     Dates: start: 20060426, end: 20060426
  2. KYTRIL - FOR INFUSION (GRANISETRON HYDROCHLORIDE) [Concomitant]
  3. DECADRON #1 (DEXAMETHASONE SODIUM PHOSPHATE) [Concomitant]
  4. BETAMETHASONE [Concomitant]
  5. ETODOLAC [Concomitant]
  6. PARIET /JPN/ (RABEPRAZOLE SODIUM) [Concomitant]
  7. MUCOSTA (REBAMIPIDE) [Concomitant]
  8. THEOLONG (THEOPHYLLINE) [Concomitant]
  9. SPIROPENT (CLENBUTEROL HYDROCHLORIDE) [Concomitant]
  10. OXYCONTIN [Concomitant]

REACTIONS (22)
  - ABDOMINAL PAIN [None]
  - ACTIVITIES OF DAILY LIVING IMPAIRED [None]
  - ASCITES [None]
  - ASTHENIA [None]
  - ATELECTASIS [None]
  - CONDITION AGGRAVATED [None]
  - DEPRESSED LEVEL OF CONSCIOUSNESS [None]
  - EMPHYSEMA [None]
  - GASTRIC ULCER HAEMORRHAGE [None]
  - GUILLAIN-BARRE SYNDROME [None]
  - HAEMOGLOBIN DECREASED [None]
  - HYPERCAPNIA [None]
  - LUNG NEOPLASM [None]
  - MALIGNANT NEOPLASM PROGRESSION [None]
  - METASTASES TO LIVER [None]
  - MUSCULAR WEAKNESS [None]
  - PERIPHERAL MOTOR NEUROPATHY [None]
  - PERITONEAL DISORDER [None]
  - PLATELET COUNT DECREASED [None]
  - PNEUMOTHORAX [None]
  - RESPIRATORY FAILURE [None]
  - TUMOUR HAEMORRHAGE [None]
